FAERS Safety Report 21602993 (Version 1)
Quarter: 2022Q4

REPORT INFORMATION
  Report Type: Spontaneous
  Country: US (occurrence: None)
  Receive Date: 20221115
  Receipt Date: 20221115
  Transmission Date: 20230113
  Serious: No
  Sender: FDA-Public Use
  Company Number: None

PATIENT

DRUGS (7)
  1. MEROPENEM [Suspect]
     Active Substance: MEROPENEM
     Dosage: OTHER STRENGTH : 1 GRAM PER VIAL;?
     Route: 042
  2. ERTAPENEM SODIUM [Suspect]
     Active Substance: ERTAPENEM SODIUM
     Dosage: OTHER STRENGTH : 1 GRAM PER VIAL;?
  3. PANTOPRAZOLE SODIUM [Suspect]
     Active Substance: PANTOPRAZOLE SODIUM
  4. AZITHROMYCIN [Suspect]
     Active Substance: AZITHROMYCIN
  5. SODIUM CHLORIDE [Suspect]
     Active Substance: SODIUM CHLORIDE
  6. MAGNESIUM SULFATE [Suspect]
     Active Substance: MAGNESIUM SULFATE
  7. MAGNESIUM SULFATE [Suspect]
     Active Substance: MAGNESIUM SULFATE

REACTIONS (2)
  - Product packaging confusion [None]
  - Product label confusion [None]
